FAERS Safety Report 7551863-2 (Version None)
Quarter: 2011Q2

REPORT INFORMATION
  Report Type: 
  Country: None (occurrence: None)
  Receive Date: 20110616
  Receipt Date: 20100618
  Transmission Date: 20111010
  Serious: Yes (Other)
  Sender: FDA-Public Use
  Company Number: US-JNJFOC-20110603320

PATIENT
  Age: 6 Month
  Sex: Male

DRUGS (4)
  1. CHILDREN'S TYLENOL SUSPENSION [Suspect]
     Route: 048
  2. CHILDREN'S TYLENOL SUSPENSION [Suspect]
     Indication: PROCEDURAL PAIN
     Route: 048
  3. CHILDREN'S MOTRIN [Suspect]
     Route: 048
  4. CHILDREN'S MOTRIN [Suspect]
     Indication: PROCEDURAL PAIN
     Route: 048

REACTIONS (2)
  - PRODUCT QUALITY ISSUE [None]
  - STAPHYLOCOCCAL INFECTION [None]
